FAERS Safety Report 6278562-1 (Version None)
Quarter: 2009Q3

REPORT INFORMATION
  Report Type: 
  Country: None (occurrence: None)
  Receive Date: 20090722
  Receipt Date: 20080915
  Transmission Date: 20100115
  Serious: No
  Sender: FDA-Public Use
  Company Number: US-BAUSCH-2008BL003992

PATIENT
  Age: 52 Year
  Sex: Female

DRUGS (3)
  1. OPCON-A [Suspect]
     Indication: OCULAR HYPERAEMIA
     Route: 047
     Dates: start: 20080831, end: 20080831
  2. ADVANCED EYE RELIEF/REDNESS INSTANT RELIEF EYE DROPS [Suspect]
     Indication: OCULAR HYPERAEMIA
     Route: 047
     Dates: start: 20080830, end: 20080830
  3. ADVANCED EYE RELIEF/REDNESS LUBRICANT EYE DROPS [Suspect]
     Indication: OCULAR HYPERAEMIA
     Route: 047
     Dates: start: 20080831, end: 20080831

REACTIONS (1)
  - MYDRIASIS [None]
